FAERS Safety Report 19985140 (Version 2)
Quarter: 2022Q1

REPORT INFORMATION
  Report Type: Spontaneous
  Country: JP (occurrence: JP)
  Receive Date: 20211022
  Receipt Date: 20220323
  Transmission Date: 20220424
  Serious: Yes (Hospitalization)
  Sender: FDA-Public Use
  Company Number: JP-BAUSCH-BL-2021-035255

PATIENT

DRUGS (2)
  1. BRODALUMAB [Suspect]
     Active Substance: BRODALUMAB
     Indication: Product used for unknown indication
     Route: 058
  2. BRODALUMAB [Suspect]
     Active Substance: BRODALUMAB
     Route: 058

REACTIONS (1)
  - Hospitalisation [Recovered/Resolved]
